FAERS Safety Report 6766682-4 (Version None)
Quarter: 2010Q2

REPORT INFORMATION
  Report Type: 
  Country: None (occurrence: None)
  Receive Date: 20100611
  Receipt Date: 20100430
  Transmission Date: 20101027
  Serious: Yes (Death, Other)
  Sender: FDA-Public Use
  Company Number: US-BAXTER-2010BH007836

PATIENT
  Age: 76 Year
  Sex: Female

DRUGS (2)
  1. HEPARIN SODIUM [Suspect]
     Indication: CORONARY ARTERY BYPASS
     Route: 065
     Dates: start: 20071030, end: 20071101
  2. HEPARIN SODIUM [Suspect]
     Indication: AORTIC VALVE REPLACEMENT
     Route: 065
     Dates: start: 20071030, end: 20071101

REACTIONS (5)
  - ASTHENIA [None]
  - BACTERAEMIA [None]
  - CEREBROVASCULAR ACCIDENT [None]
  - ENDOCARDITIS [None]
  - HEPARIN-INDUCED THROMBOCYTOPENIA [None]
